FAERS Safety Report 5782670-9 (Version None)
Quarter: 2008Q2

REPORT INFORMATION
  Report Type: 
  Country: None (occurrence: None)
  Receive Date: 20080619
  Receipt Date: 20071011
  Transmission Date: 20081010
  Serious: Yes (Other)
  Sender: FDA-Public Use
  Company Number: 2007US002509

PATIENT
  Age: 53 Year
  Sex: Male

DRUGS (1)
  1. AMEVIVE [Suspect]
     Indication: DRUG USE FOR UNKNOWN INDICATION
     Dosage: UNK, UNK, UNK
     Dates: end: 20050101

REACTIONS (2)
  - FIBROSARCOMA [None]
  - METASTATIC SQUAMOUS CELL CARCINOMA [None]
